FAERS Safety Report 4280739-1 (Version None)
Quarter: 2004Q1

REPORT INFORMATION
  Report Type: 
  Country: None (occurrence: None)
  Receive Date: 20040129
  Receipt Date: 20031125
  Transmission Date: 20041129
  Serious: No
  Sender: FDA-Public Use
  Company Number: US-BRISTOL-MYERS SQUIBB COMPANY-12446514

PATIENT
  Age: 65 Year
  Sex: Female
  Weight: 86 kg

DRUGS (5)
  1. METAGLIP [Suspect]
     Indication: DIABETES MELLITUS
     Dosage: DOSAGE FORM = 1 TABLET = 2.5MG/500MG
     Route: 048
  2. POTASSIUM [Concomitant]
  3. CELEBREX [Concomitant]
  4. TENORMIN [Concomitant]
  5. NEXIUM [Concomitant]

REACTIONS (4)
  - BLOOD GLUCOSE DECREASED [None]
  - CARDIAC FLUTTER [None]
  - FEELING JITTERY [None]
  - NERVOUSNESS [None]
